FAERS Safety Report 8625937-9 (Version None)
Quarter: 2012Q3

REPORT INFORMATION
  Report Type: 
  Country: None (occurrence: None)
  Receive Date: 20120827
  Receipt Date: 20120816
  Transmission Date: 20120928
  Serious: Yes (Hospitalization, Other)
  Sender: FDA-Public Use
  Company Number: CN-ROCHE-1107957

PATIENT
  Sex: Male
  Weight: 61.5 kg

DRUGS (3)
  1. PEGASYS [Suspect]
     Indication: HEPATITIS C
     Route: 058
     Dates: start: 20090201, end: 20090407
  2. RIBAVIRIN [Suspect]
     Indication: HEPATITIS C
     Route: 048
     Dates: start: 20080801, end: 20090407
  3. SIROLIMUS [Concomitant]
     Indication: LIVER TRANSPLANT
     Route: 048
     Dates: start: 20080801, end: 20090404

REACTIONS (3)
  - FAECES DISCOLOURED [None]
  - ANAEMIA [None]
  - OCCULT BLOOD [None]
